FAERS Safety Report 5534121-7 (Version None)
Quarter: 2007Q4

REPORT INFORMATION
  Report Type: 
  Country: None (occurrence: None)
  Receive Date: 20071205
  Receipt Date: 20071129
  Transmission Date: 20080405
  Serious: Yes (Hospitalization)
  Sender: FDA-Public Use
  Company Number: PHHO2007FR18112

PATIENT
  Age: 55 Year
  Sex: Female

DRUGS (5)
  1. MYFORTIC [Suspect]
     Indication: RENAL TRANSPLANT
     Dosage: 1440 MG, BID
     Route: 048
     Dates: start: 20070727
  2. CORTICOSTEROIDS [Concomitant]
     Indication: RENAL TRANSPLANT
     Dosage: 10 MG
     Dates: start: 20070727
  3. NEORAL [Concomitant]
     Indication: PROPHYLAXIS AGAINST TRANSPLANT REJECTION
     Dosage: 175 MG, BID
     Route: 048
     Dates: start: 20070727
  4. RABEPRAZOLE SODIUM [Concomitant]
     Indication: GASTRIC ULCER
     Dates: start: 20070731
  5. BACTRIM [Concomitant]
     Indication: PROPHYLAXIS
     Dates: start: 20070731

REACTIONS (2)
  - HERNIAL EVENTRATION [None]
  - INTESTINAL OBSTRUCTION [None]
